FAERS Safety Report 6763949-0 (Version None)
Quarter: 2010Q2

REPORT INFORMATION
  Report Type: 
  Country: None (occurrence: None)
  Receive Date: 20100610
  Receipt Date: 20100603
  Transmission Date: 20101027
  Serious: Yes (Disabling)
  Sender: FDA-Public Use
  Company Number: CA-VALEANT-2010VX000890

PATIENT
  Sex: Female

DRUGS (6)
  1. MESTINON [Suspect]
     Indication: DRUG USE FOR UNKNOWN INDICATION
     Route: 048
  2. PANTOPRAZOLE [Suspect]
     Indication: DRUG USE FOR UNKNOWN INDICATION
     Route: 048
  3. CALCIUM WITH VITAMIN D [Concomitant]
     Route: 065
  4. COZAAR [Concomitant]
     Route: 065
  5. HYDROCHLOROTHIAZIDE [Concomitant]
     Route: 065
  6. SYNTHROID [Concomitant]
     Route: 065

REACTIONS (7)
  - DRY SKIN [None]
  - FALL [None]
  - LIP DRY [None]
  - PRURITUS [None]
  - SALIVARY HYPERSECRETION [None]
  - SKIN HYPERPIGMENTATION [None]
  - VISION BLURRED [None]
